FAERS Safety Report 21048540 (Version 1)
Quarter: 2022Q3

REPORT INFORMATION
  Report Type: Spontaneous
  Country: US (occurrence: None)
  Receive Date: 20220706
  Receipt Date: 20220706
  Transmission Date: 20221027
  Serious: Yes (Hospitalization)
  Sender: FDA-Public Use
  Company Number: None

PATIENT
  Age: 82 Year
  Sex: Male

DRUGS (1)
  1. EVEROLIMUS [Suspect]
     Active Substance: EVEROLIMUS
     Indication: Neuroendocrine tumour
     Dosage: 7.5MG ONCE DAILY ORAL?
     Route: 048
     Dates: start: 20211231

REACTIONS (3)
  - Chills [None]
  - Gastrointestinal infection [None]
  - Diverticulitis [None]

NARRATIVE: CASE EVENT DATE: 20220622
